FAERS Safety Report 25585951 (Version 1)
Quarter: 2025Q3

REPORT INFORMATION
  Report Type: Spontaneous
  Country: US (occurrence: None)
  Receive Date: 20250718
  Receipt Date: 20250718
  Transmission Date: 20251020
  Serious: Yes (Disabling)
  Sender: FDA-CTU
  Company Number: None

PATIENT
  Age: 79 Year
  Sex: Female
  Weight: 63 kg

DRUGS (6)
  1. EVENITY [Suspect]
     Active Substance: ROMOSOZUMAB-AQQG
     Indication: Osteoporosis
     Route: 030
     Dates: start: 20250211, end: 20250606
  2. Repatha (started after I stopped Evenity) [Concomitant]
  3. MINERALS\VITAMINS [Concomitant]
     Active Substance: MINERALS\VITAMINS
  4. Vitamin B multi supplement [Concomitant]
  5. CALCIUM [Concomitant]
     Active Substance: CALCIUM
  6. VITAMIN D NOS [Concomitant]
     Active Substance: CHOLECALCIFEROL\ERGOCALCIFEROL

REACTIONS (9)
  - Pain in extremity [None]
  - Pain in extremity [None]
  - Muscular weakness [None]
  - Bone pain [None]
  - Grip strength decreased [None]
  - Hypotension [None]
  - Asthenia [None]
  - Malaise [None]
  - Peripheral swelling [None]

NARRATIVE: CASE EVENT DATE: 20250212
